FAERS Safety Report 16902685 (Version 1)
Quarter: 2019Q4

REPORT INFORMATION
  Report Type: Spontaneous
  Country: US (occurrence: US)
  Receive Date: 20191010
  Receipt Date: 20191010
  Transmission Date: 20200122
  Serious: Yes (Other)
  Sender: FDA-Public Use
  Company Number: US-LUPIN PHARMACEUTICALS INC.-2019-06464

PATIENT
  Age: 2 Year
  Sex: Female

DRUGS (1)
  1. GAVILAX [Suspect]
     Active Substance: POLYETHYLENE GLYCOL 3350
     Indication: CONSTIPATION
     Dosage: UNK, RECEIVED 8-TABLESPOON (8 OZ)
     Route: 048

REACTIONS (3)
  - Prescription drug used without a prescription [Unknown]
  - Overdose [Unknown]
  - Product use issue [Unknown]
